FAERS Safety Report 8663362 (Version 3)
Quarter: 2015Q1

REPORT INFORMATION
  Report Type: Spontaneous
  Country: US (occurrence: US)
  Receive Date: 20120713
  Receipt Date: 20150305
  Transmission Date: 20150721
  Serious: Yes (Hospitalization)
  Sender: FDA-Public Use
  Company Number: US-BAYER-2012-069496

PATIENT
  Age: 40 Year
  Sex: Female
  Weight: 63.49 kg

DRUGS (5)
  1. TRIAZOLAM. [Concomitant]
     Active Substance: TRIAZOLAM
     Dosage: 0.25 MG, UNK
     Route: 048
  2. AMOXICILLIN. [Concomitant]
     Active Substance: AMOXICILLIN
     Dosage: 500 MG, UNK
  3. YAZ [Suspect]
     Active Substance: DROSPIRENONE\ETHINYL ESTRADIOL
     Indication: PREMENSTRUAL SYNDROME
     Dosage: UNK
     Dates: start: 20091015, end: 201007
  4. LEXAPRO [Concomitant]
     Active Substance: ESCITALOPRAM OXALATE
     Dosage: 10 MG EVERY DAY
     Route: 048
  5. FOLIC ACID. [Concomitant]
     Active Substance: FOLIC ACID
     Dosage: 7.5 MG DAILY

REACTIONS (11)
  - Anxiety [None]
  - Psychological trauma [None]
  - General physical health deterioration [None]
  - Cerebral artery occlusion [Not Recovered/Not Resolved]
  - Emotional distress [None]
  - Pain [None]
  - Anhedonia [None]
  - Depression [None]
  - Ischaemic stroke [None]
  - Injury [None]
  - Off label use [None]

NARRATIVE: CASE EVENT DATE: 20100728
